FAERS Safety Report 4837788-1 (Version None)
Quarter: 2005Q4

REPORT INFORMATION
  Report Type: 
  Country: None (occurrence: None)
  Receive Date: 20051128
  Receipt Date: 20051118
  Transmission Date: 20060501
  Serious: Yes (Hospitalization)
  Sender: FDA-Public Use
  Company Number: US-MERCK-0511USA03502

PATIENT
  Sex: Male
  Weight: 113 kg

DRUGS (5)
  1. VIOXX [Suspect]
     Indication: ROTATOR CUFF REPAIR
     Route: 048
     Dates: start: 20040101, end: 20040901
  2. DIOVAN [Concomitant]
     Route: 065
  3. LIPITOR [Concomitant]
     Route: 065
  4. ASPIRIN [Concomitant]
     Route: 065
  5. ADVIL [Concomitant]
     Route: 065

REACTIONS (2)
  - ACUTE CORONARY SYNDROME [None]
  - PANCREATITIS [None]
